FAERS Safety Report 10061440 (Version 1)
Quarter: 2014Q2

REPORT INFORMATION
  Report Type: Spontaneous
  Country: US (occurrence: US)
  Receive Date: 20140407
  Receipt Date: 20140407
  Transmission Date: 20141212
  Serious: Yes (Hospitalization)
  Sender: FDA-Public Use
  Company Number: US-BAYER-2014-047315

PATIENT
  Age: 26 Year
  Sex: Female

DRUGS (8)
  1. BEYAZ [Suspect]
  2. OCELLA [Suspect]
  3. KLONOPIN [Concomitant]
  4. HYDROCHLOROTHIAZIDE [Concomitant]
  5. CITALOPRAM [Concomitant]
  6. MUPIROCIN [Concomitant]
     Dosage: 2 %, UNK
     Dates: start: 20130114
  7. METOPROLOL SUCCINATE [Concomitant]
     Dosage: UNK
     Dates: start: 20130301
  8. CYCLOBENZAPRINE [Concomitant]
     Dosage: UNK
     Dates: start: 20130304

REACTIONS (1)
  - Pulmonary embolism [None]
